FAERS Safety Report 13298191 (Version 1)
Quarter: 2017Q1

REPORT INFORMATION
  Report Type: Spontaneous
  Country: US (occurrence: US)
  Receive Date: 20170306
  Receipt Date: 20170306
  Transmission Date: 20170428
  Serious: Yes (Hospitalization, Other)
  Sender: FDA-Public Use
  Company Number: None

PATIENT
  Age: 17 Year
  Sex: Male
  Weight: 90 kg

DRUGS (2)
  1. ALBUTEIN [Suspect]
     Active Substance: ALBUMIN HUMAN
     Indication: PLASMA EXCHANGE
     Route: 042
     Dates: start: 20170117
  2. ALBUTEIN [Suspect]
     Active Substance: ALBUMIN HUMAN
     Indication: PLASMA EXCHANGE
     Route: 042
     Dates: start: 20170116

REACTIONS (10)
  - Nausea [None]
  - Arrhythmia [None]
  - Hypotension [None]
  - Cardio-respiratory arrest [None]
  - Hypocalcaemia [None]
  - Anaphylactoid reaction [None]
  - Electrolyte imbalance [None]
  - Bradycardia [None]
  - Presyncope [None]
  - Hypersensitivity [None]

NARRATIVE: CASE EVENT DATE: 20170116
